FAERS Safety Report 11990672 (Version 1)
Quarter: 2016Q1

REPORT INFORMATION
  Report Type: Spontaneous
  Country: US (occurrence: US)
  Receive Date: 20160202
  Receipt Date: 20160202
  Transmission Date: 20160526
  Serious: No
  Sender: FDA-Public Use
  Company Number: US-GALDERMA-US15008807

PATIENT
  Sex: Female

DRUGS (1)
  1. EPIDUO [Suspect]
     Active Substance: ADAPALENE\BENZOYL PEROXIDE
     Indication: RASH
     Route: 061

REACTIONS (4)
  - Skin hypopigmentation [Unknown]
  - Skin burning sensation [Unknown]
  - Skin hyperpigmentation [Unknown]
  - Pain of skin [Unknown]
